FAERS Safety Report 20367774 (Version 1)
Quarter: 2022Q1

REPORT INFORMATION
  Report Type: Spontaneous
  Country: US (occurrence: US)
  Receive Date: 20220124
  Receipt Date: 20220124
  Transmission Date: 20220424
  Serious: Yes (Other)
  Sender: FDA-Public Use
  Company Number: US-drreddys-LIT/USA/22/0146067

PATIENT
  Sex: Male

DRUGS (9)
  1. COLCHICINE [Suspect]
     Active Substance: COLCHICINE
     Indication: X-linked lymphoproliferative syndrome
  2. ANAKINRA [Suspect]
     Active Substance: ANAKINRA
     Indication: Immunodeficiency
  3. CANAKINUMAB [Suspect]
     Active Substance: CANAKINUMAB
     Indication: Immunodeficiency
  4. ETANERCEPT [Suspect]
     Active Substance: ETANERCEPT
     Indication: Immunodeficiency
  5. INFLIXIMAB [Suspect]
     Active Substance: INFLIXIMAB
     Indication: Immunodeficiency
  6. MESALAMINE [Suspect]
     Active Substance: MESALAMINE
     Indication: Immunodeficiency
  7. RITUXIMAB [Suspect]
     Active Substance: RITUXIMAB
     Indication: Immunodeficiency
  8. TOCILIZUMAB [Suspect]
     Active Substance: TOCILIZUMAB
     Indication: Immunodeficiency
  9. VEDOLIZUMAB [Suspect]
     Active Substance: VEDOLIZUMAB
     Indication: Immunodeficiency

REACTIONS (1)
  - Drug ineffective [Unknown]
